FAERS Safety Report 9686557 (Version 1)
Quarter: 2013Q4

REPORT INFORMATION
  Report Type: Spontaneous
  Country: US (occurrence: US)
  Receive Date: 20131113
  Receipt Date: 20131113
  Transmission Date: 20140711
  Serious: No
  Sender: FDA-Public Use
  Company Number: US-ENDO PHARMACEUTICALS INC.-TRAZ20120006

PATIENT
  Sex: Female

DRUGS (1)
  1. TRAZODONE HYDROCHLORIDE TABLETS 50MG [Suspect]
     Indication: INSOMNIA
     Dosage: 50 MG
     Route: 048
     Dates: start: 201201

REACTIONS (3)
  - Glossodynia [Not Recovered/Not Resolved]
  - Salivary hypersecretion [Recovering/Resolving]
  - Dysgeusia [Not Recovered/Not Resolved]
